FAERS Safety Report 10879999 (Version 1)
Quarter: 2015Q1

REPORT INFORMATION
  Report Type: Spontaneous
  Country: US (occurrence: US)
  Receive Date: 20150302
  Receipt Date: 20150302
  Transmission Date: 20150721
  Serious: Yes (Hospitalization)
  Sender: FDA-Public Use
  Company Number: US-SA-2015SA024410

PATIENT
  Age: 65 Year
  Sex: Male

DRUGS (5)
  1. ASPIRIN. [Concomitant]
     Active Substance: ASPIRIN
     Indication: ATRIAL FIBRILLATION
     Route: 065
  2. KEFLEX [Suspect]
     Active Substance: CEPHALEXIN
     Route: 065
  3. SUTENT [Suspect]
     Active Substance: SUNITINIB MALATE
     Indication: RENAL CANCER
     Dosage: FOUR TIMES A DAY, PATIENT WAS TAKING THIS FOR 4 WEEKS AND THEN OFF FOR 2 WEEKS
     Route: 065
     Dates: start: 20140224
  4. AMBIEN [Suspect]
     Active Substance: ZOLPIDEM TARTRATE
     Indication: SLEEP DISORDER
     Route: 065
  5. ATIVAN [Concomitant]
     Active Substance: LORAZEPAM
     Indication: SLEEP DISORDER
     Route: 065

REACTIONS (6)
  - Condition aggravated [Unknown]
  - Drug ineffective [Unknown]
  - Localised infection [Unknown]
  - Radiation skin injury [Unknown]
  - Wound infection [Unknown]
  - Limb operation [Unknown]

NARRATIVE: CASE EVENT DATE: 20141027
